FAERS Safety Report 7085765-5 (Version None)
Quarter: 2010Q4

REPORT INFORMATION
  Report Type: 
  Country: None (occurrence: None)
  Receive Date: 20101105
  Receipt Date: 20101025
  Transmission Date: 20110411
  Serious: Yes (Other)
  Sender: FDA-Public Use
  Company Number: DE-ROCHE-481893

PATIENT
  Age: 71 Year
  Sex: Female

DRUGS (2)
  1. BONIVA [Suspect]
     Indication: OSTEOPOROSIS
     Route: 048
     Dates: start: 20060101, end: 20080101
  2. BONIVA [Suspect]
     Route: 048
     Dates: start: 20101023

REACTIONS (3)
  - CHROMATURIA [None]
  - ENDOMETRIAL CANCER [None]
  - METASTASES TO LUNG [None]
